FAERS Safety Report 5789736-8 (Version None)
Quarter: 2008Q2

REPORT INFORMATION
  Report Type: 
  Country: None (occurrence: None)
  Receive Date: 20080626
  Receipt Date: 20080229
  Transmission Date: 20081010
  Serious: No
  Sender: FDA-Public Use
  Company Number: A0709196A

PATIENT
  Age: 27 Year
  Sex: Female

DRUGS (3)
  1. ALLI [Suspect]
     Indication: WEIGHT LOSS DIET
     Dosage: 60MG THREE TIMES PER DAY
     Route: 048
  2. ADDERALL 10 [Concomitant]
  3. KARIVA [Concomitant]

REACTIONS (10)
  - ANAL FISTULA [None]
  - FEELING HOT [None]
  - GROIN PAIN [None]
  - LETHARGY [None]
  - LOCAL SWELLING [None]
  - PERIANAL ERYTHEMA [None]
  - PERIRECTAL ABSCESS [None]
  - PHARYNGITIS STREPTOCOCCAL [None]
  - PHARYNGOLARYNGEAL PAIN [None]
  - PYREXIA [None]
